FAERS Safety Report 8609162-3 (Version None)
Quarter: 2012Q3

REPORT INFORMATION
  Report Type: 
  Country: None (occurrence: None)
  Receive Date: 20120821
  Receipt Date: 20120817
  Transmission Date: 20120928
  Serious: No
  Sender: FDA-Public Use
  Company Number: US-TEVA-350138USA

PATIENT
  Sex: Female
  Weight: 79.45 kg

DRUGS (1)
  1. PROAIR HFA [Suspect]
     Indication: DYSPNOEA
     Route: 055
     Dates: start: 20120701

REACTIONS (2)
  - NASAL CONGESTION [None]
  - RESPIRATORY TRACT INFECTION [None]
